FAERS Safety Report 8495121-0 (Version None)
Quarter: 2012Q2

REPORT INFORMATION
  Report Type: 
  Country: None (occurrence: None)
  Receive Date: 20120627
  Receipt Date: 20120620
  Transmission Date: 20120825
  Serious: Yes (Hospitalization)
  Sender: FDA-Public Use
  Company Number: DSA_58032_2012

PATIENT
  Sex: Male
  Weight: 72.5755 kg

DRUGS (14)
  1. ADVAIR DISKUS 100/50 [Concomitant]
  2. ASPIRIN [Concomitant]
  3. ALBUTEROL [Concomitant]
  4. CLOBETASOL PROPIONATE [Concomitant]
  5. HYDROCHLOROTHIAZIDE [Concomitant]
  6. SIMVASTATIN [Concomitant]
  7. XENAZINE [Suspect]
     Indication: PRODUCT USED FOR UNKNOWN INDICATION
     Dosage: (25 MG QID ORAL)
     Route: 048
  8. KETOCONAZOLE [Concomitant]
  9. BENADRYL [Concomitant]
  10. AMANTADINE HCL [Concomitant]
  11. ZOLOFT [Concomitant]
  12. TRAZODONE HCL [Concomitant]
  13. EQUATE MATURE ADULTS 50+ MULTIVITAMIN [Concomitant]
  14. CLONAZEPAM [Concomitant]

REACTIONS (5)
  - GAIT DISTURBANCE [None]
  - MUSCULOSKELETAL STIFFNESS [None]
  - HEPATIC NEOPLASM MALIGNANT [None]
  - COLON CANCER [None]
  - FALL [None]
